FAERS Safety Report 11749655 (Version 1)
Quarter: 2015Q4

REPORT INFORMATION
  Report Type: Spontaneous
  Country: IL (occurrence: IL)
  Receive Date: 20151118
  Receipt Date: 20151118
  Transmission Date: 20160304
  Serious: Yes (Death, Hospitalization)
  Sender: FDA-Public Use
  Company Number: IL-KAMADA LIMITED-2015IL010008

PATIENT

DRUGS (1)
  1. GLASSIA [Suspect]
     Active Substance: .ALPHA.1-PROTEINASE INHIBITOR HUMAN
     Indication: CHRONIC GRAFT VERSUS HOST DISEASE
     Dosage: 6 G UNKNOWN FREQUENCY
     Dates: start: 20150503, end: 20150726

REACTIONS (5)
  - Chronic graft versus host disease [Fatal]
  - Pleural effusion [Fatal]
  - Off label use [Unknown]
  - Condition aggravated [Fatal]
  - Sepsis [Fatal]

NARRATIVE: CASE EVENT DATE: 20150503
